FAERS Safety Report 24538922 (Version 1)
Quarter: 2024Q4

REPORT INFORMATION
  Report Type: Report from Study
  Country: CN (occurrence: CN)
  Receive Date: 20241023
  Receipt Date: 20241023
  Transmission Date: 20250115
  Serious: Yes (Life-Threatening)
  Sender: ROCHE
  Company Number: CN-ROCHE-10000048729

PATIENT
  Age: 75 Year
  Sex: Male

DRUGS (3)
  1. TECENTRIQ [Suspect]
     Active Substance: ATEZOLIZUMAB
     Indication: Hepatic cancer
     Dosage: STRENGTH: 1200 MG/20 ML
     Route: 050
     Dates: start: 20240728
  2. BEVACIZUMAB [Suspect]
     Active Substance: BEVACIZUMAB
     Indication: Hepatic cancer
     Route: 050
     Dates: start: 20240728
  3. NEXIUM I.V. [Concomitant]
     Active Substance: ESOMEPRAZOLE SODIUM

REACTIONS (13)
  - Vomiting [Not Recovered/Not Resolved]
  - Ascites [Unknown]
  - Flatulence [Unknown]
  - Mental disorder [Unknown]
  - Constipation [Unknown]
  - Pyrexia [Unknown]
  - Hyperkalaemia [Recovering/Resolving]
  - Haematemesis [Recovering/Resolving]
  - Confusional state [Recovering/Resolving]
  - Gastric haemorrhage [Unknown]
  - Gait inability [Unknown]
  - Hypophagia [Unknown]
  - Bedridden [Unknown]

NARRATIVE: CASE EVENT DATE: 20240730
